FAERS Safety Report 9922743 (Version 1)
Quarter: 2014Q1

REPORT INFORMATION
  Report Type: Spontaneous
  Country: IT (occurrence: IT)
  Receive Date: 20140225
  Receipt Date: 20140225
  Transmission Date: 20141002
  Serious: Yes (Hospitalization)
  Sender: FDA-Public Use
  Company Number: IT-TEVA-462914ISR

PATIENT
  Age: 80 Year
  Sex: Male

DRUGS (9)
  1. METFORMIN [Suspect]
     Indication: DIABETES MELLITUS
     Dosage: 1500 MILLIGRAM DAILY; 1500 MG DAILY
     Route: 048
     Dates: start: 20120101, end: 20140112
  2. HUMALOG 100 U/ML SOLUZ. INIETTABILE - ELI LILLY NEDERLAND BV [Suspect]
     Indication: DIABETES MELLITUS
     Dosage: 30 IU (INTERNATIONAL UNIT) DAILY; 30 IU DAILY
     Route: 058
     Dates: start: 20120101, end: 20140112
  3. HUMULIN -30/70 FLACONE 10 ML 100 U/ML - ELI LILLY ITALIA S.P.A [Suspect]
     Indication: DIABETES MELLITUS
     Dosage: 10 IU (INTERNATIONAL UNIT) DAILY; 10IU DAILY
     Route: 058
     Dates: start: 20120101, end: 20140112
  4. TRIATEC - 10 MG COMPRESSE [Concomitant]
     Indication: HYPERTENSION
  5. ZYLORIC - 100 MG COMPRESSE [Concomitant]
     Indication: PRODUCT USED FOR UNKNOWN INDICATION
  6. COAPROVEL 150 MG /12,5 MG [Concomitant]
     Indication: HYPERTENSION
  7. CARDURA - 2 MG COMPRESSE [Concomitant]
     Indication: PRODUCT USED FOR UNKNOWN INDICATION
  8. SEROQUEL - 25 MG COMPRESSE RIVESTITE CON FILM [Concomitant]
     Indication: SENILE DEMENTIA
  9. ACETYLSALICYLIC ACID [Concomitant]
     Indication: PRODUCT USED FOR UNKNOWN INDICATION
     Dosage: 100MG

REACTIONS (1)
  - Hypoglycaemic coma [Recovered/Resolved]
